FAERS Safety Report 9604297 (Version 2)
Quarter: 2013Q4

REPORT INFORMATION
  Report Type: Report from Study
  Country: BR (occurrence: BR)
  Receive Date: 20131008
  Receipt Date: 20131209
  Transmission Date: 20140711
  Serious: Yes (Other)
  Sender: FDA-Public Use
  Company Number: PHHY2013BR112074

PATIENT
  Sex: Female
  Weight: 64 kg

DRUGS (16)
  1. EXELON PATCH [Suspect]
     Indication: DEMENTIA ALZHEIMER^S TYPE
     Dosage: 9.5 MG,DAILY (ONE 10 CM2 PATCH, DAILY)
     Route: 062
     Dates: start: 201109, end: 201109
  2. EXELON PATCH [Suspect]
     Dosage: 9.5 MG, DAILY ( ONE 10 CM2 PATCH, DAILY)
     Route: 062
     Dates: start: 201311
  3. BROMAZEPAM [Concomitant]
     Indication: INSOMNIA
     Dosage: 0.5 DF, DAILY
     Route: 048
  4. ALOIS [Concomitant]
     Dosage: 2 DF, DAILY
     Route: 048
  5. ENALAPRIL [Concomitant]
     Dosage: 1 DF, DAILY
     Route: 048
  6. AMLODIPINE BESILATE [Concomitant]
     Dosage: 1 DF, DAILY
     Route: 048
  7. SINVASTATINA [Concomitant]
     Dosage: 1 DF, DAILY
     Route: 048
  8. MENELAT [Concomitant]
     Dosage: 1 DF, DAILY
     Route: 048
  9. PROLIA [Concomitant]
     Dosage: UNK UKN, BID
  10. CALCIUM 600+VITAMIN D3 400 [Concomitant]
     Dosage: 1 DF, DAILY
     Route: 048
  11. NEOTIAPIM [Concomitant]
     Dosage: 2 DF, DAILY
     Route: 048
  12. ENSURE [Concomitant]
     Dosage: 2 DF, DAILY
     Route: 048
  13. PLANTABEN//PLANTAGO OVATA [Concomitant]
     Dosage: 1 DF, DAILY
     Route: 048
  14. PROLOPA [Concomitant]
     Dosage: 4 DF, DAILY
     Route: 048
  15. DONAREN [Concomitant]
     Dosage: 1 DF, DAILY
     Route: 048
  16. FLANCOX [Concomitant]
     Dosage: 3 DF, DAILY
     Route: 048

REACTIONS (5)
  - Dementia Alzheimer^s type [Not Recovered/Not Resolved]
  - Delirium [Not Recovered/Not Resolved]
  - Agraphia [Not Recovered/Not Resolved]
  - Cognitive disorder [Not Recovered/Not Resolved]
  - Hypertension [Not Recovered/Not Resolved]
